FAERS Safety Report 6424657-9 (Version None)
Quarter: 2009Q4

REPORT INFORMATION
  Report Type: 
  Country: None (occurrence: None)
  Receive Date: 20091029
  Receipt Date: 20091015
  Transmission Date: 20100525
  Serious: Yes (Death, Hospitalization)
  Sender: FDA-Public Use
  Company Number: 1000009373

PATIENT
  Age: 87 Year
  Sex: Male

DRUGS (17)
  1. MEMANTINE HCL [Suspect]
     Indication: DEMENTIA ALZHEIMER'S TYPE
     Dosage: 10 MG (5 MG,2 IN 1 D),ORAL ; 5 MG (5 MG,1 IN 1 D),ORAL
     Route: 048
     Dates: start: 20090819, end: 20090101
  2. MEMANTINE HCL [Suspect]
     Indication: DEMENTIA ALZHEIMER'S TYPE
     Dosage: 10 MG (5 MG,2 IN 1 D),ORAL ; 5 MG (5 MG,1 IN 1 D),ORAL
     Route: 048
     Dates: start: 20090101
  3. ATORVASTATIN [Concomitant]
  4. BISOPROLOL [Concomitant]
  5. CYANOCOBALAMIN [Concomitant]
  6. DIGOXIN [Concomitant]
  7. RISPERIDONE [Concomitant]
  8. CLOPIDOGREL [Concomitant]
  9. TAMSULOSIN [Concomitant]
  10. FUROSEMIDE [Concomitant]
  11. LANSOPRAZOLE [Concomitant]
  12. ACETYLSALICYLIC ACID EC [Concomitant]
  13. MAGNESIUM HYDROXIDE TAB [Concomitant]
  14. GLYCERIN [Concomitant]
  15. SODIUM PHOSPHATES [Concomitant]
  16. ACETAMINOPHEN [Concomitant]
  17. RISPERIDONE [Concomitant]

REACTIONS (2)
  - FALL [None]
  - SUBDURAL HAEMATOMA [None]
